FAERS Safety Report 4390683-7 (Version None)
Quarter: 2004Q2

REPORT INFORMATION
  Report Type: 
  Country: None (occurrence: None)
  Receive Date: 20040630
  Receipt Date: 20040617
  Transmission Date: 20050107
  Serious: Yes (Other)
  Sender: FDA-Public Use
  Company Number: A-US2004-05362

PATIENT
  Age: 77 Year
  Sex: Female

DRUGS (10)
  1. TRACLEER [Suspect]
     Indication: PULMONARY HYPERTENSION
     Dosage: SEE IMAGE
     Route: 048
     Dates: start: 20031112, end: 20031204
  2. TRACLEER [Suspect]
     Indication: PULMONARY HYPERTENSION
     Dosage: SEE IMAGE
     Route: 048
     Dates: start: 20031205, end: 20040114
  3. TRACLEER [Suspect]
     Indication: PULMONARY HYPERTENSION
     Dosage: SEE IMAGE
     Route: 048
     Dates: start: 20040127, end: 20040212
  4. FOSAMAX [Concomitant]
  5. CALCIUM (CALCIUM) [Concomitant]
  6. ACETYLSALICYLIC ACID SRT [Concomitant]
  7. NIACIN [Concomitant]
  8. VITAMIN E [Concomitant]
  9. VITAMIN C (ASCORBIC ACID) [Concomitant]
  10. CENTRUM (MINERALS NOS, VITAMINS NOS) [Concomitant]

REACTIONS (8)
  - ALANINE AMINOTRANSFERASE INCREASED [None]
  - ASPARTATE AMINOTRANSFERASE INCREASED [None]
  - COUGH [None]
  - DYSPNOEA [None]
  - FLUID RETENTION [None]
  - LIVER FUNCTION TEST ABNORMAL [None]
  - OEDEMA PERIPHERAL [None]
  - SINUS CONGESTION [None]
